FAERS Safety Report 7304078-7 (Version None)
Quarter: 2011Q1

REPORT INFORMATION
  Report Type: 
  Country: None (occurrence: None)
  Receive Date: 20110221
  Receipt Date: 20110210
  Transmission Date: 20110831
  Serious: Yes (Hospitalization)
  Sender: FDA-Public Use
  Company Number: PHHY2010US79460

PATIENT
  Sex: Female
  Weight: 40.816 kg

DRUGS (1)
  1. EXJADE [Suspect]
     Dosage: 1500 MG, QD
     Route: 048
     Dates: start: 20100601, end: 20110101

REACTIONS (6)
  - IMPAIRED HEALING [None]
  - WOUND INFECTION [None]
  - DIABETIC COMPLICATION [None]
  - CELLULITIS [None]
  - SKIN ULCER [None]
  - URINARY TRACT INFECTION [None]
